FAERS Safety Report 13484959 (Version 1)
Quarter: 2017Q2

REPORT INFORMATION
  Report Type: Spontaneous
  Country: GB (occurrence: GB)
  Receive Date: 20170426
  Receipt Date: 20170426
  Transmission Date: 20170830
  Serious: Yes (Hospitalization)
  Sender: FDA-Public Use
  Company Number: GB-ORION CORPORATION ORION PHARMA-TREX2017-1159

PATIENT
  Age: 79 Year
  Sex: Female
  Weight: 88 kg

DRUGS (12)
  1. LOSARTAN. [Concomitant]
     Active Substance: LOSARTAN
     Route: 065
  2. ATORVASTATIN [Concomitant]
     Active Substance: ATORVASTATIN
     Route: 065
  3. PREDNISOLONE. [Concomitant]
     Active Substance: PREDNISOLONE
     Route: 065
  4. METHOTREXATE (TRADE NAME UNKNOWN) [Suspect]
     Active Substance: METHOTREXATE
     Indication: RHEUMATOID ARTHRITIS
     Route: 048
  5. CLARITHROMYCIN. [Concomitant]
     Active Substance: CLARITHROMYCIN
     Route: 065
  6. FOLIC ACID. [Concomitant]
     Active Substance: FOLIC ACID
     Route: 065
  7. GTN [Concomitant]
     Active Substance: NITROGLYCERIN
     Route: 065
  8. PARACETAMOL [Concomitant]
     Active Substance: ACETAMINOPHEN
     Route: 065
  9. WARFARIN [Concomitant]
     Active Substance: WARFARIN
     Route: 065
  10. BIMATOPROST. [Concomitant]
     Active Substance: BIMATOPROST
     Route: 065
  11. DORZOLAMIDE [Concomitant]
     Active Substance: DORZOLAMIDE
     Route: 065
  12. DOXYCYCLINE. [Concomitant]
     Active Substance: DOXYCYCLINE
     Route: 065

REACTIONS (3)
  - Left ventricular dysfunction [Unknown]
  - Pericarditis [Not Recovered/Not Resolved]
  - Pericardial effusion [Unknown]

NARRATIVE: CASE EVENT DATE: 20160330
